FAERS Safety Report 9341160 (Version 3)
Quarter: 2013Q3

REPORT INFORMATION
  Report Type: Spontaneous
  Country: US (occurrence: US)
  Receive Date: 20130611
  Receipt Date: 20130717
  Transmission Date: 20140515
  Serious: Yes (Disabling, Other)
  Sender: FDA-Public Use
  Company Number: US-009507513-1306USA003653

PATIENT
  Sex: Female

DRUGS (2)
  1. JANUMET [Suspect]
     Dosage: UNK
     Route: 048
     Dates: start: 20130402, end: 20130515
  2. JANUVIA [Suspect]
     Dosage: UNK
     Route: 048
     Dates: start: 20120907, end: 20130402

REACTIONS (1)
  - Pancreatic carcinoma [Not Recovered/Not Resolved]
